FAERS Safety Report 22310348 (Version 2)
Quarter: 2023Q2

REPORT INFORMATION
  Report Type: Spontaneous
  Country: ES (occurrence: ES)
  Receive Date: 20230511
  Receipt Date: 20230526
  Transmission Date: 20230722
  Serious: Yes (Other)
  Sender: FDA-Public Use
  Company Number: ES-TEVA-2023-ES-2885546

PATIENT
  Age: 74 Year
  Sex: Male

DRUGS (3)
  1. BORTEZOMIB [Suspect]
     Active Substance: BORTEZOMIB
     Indication: Plasma cell myeloma
     Dosage: PART OF VMP REGIMEN
     Route: 065
  2. MELPHALAN [Suspect]
     Active Substance: MELPHALAN
     Indication: Plasma cell myeloma
     Dosage: PART OF VMP REGIMEN
     Route: 065
  3. PREDNISONE [Suspect]
     Active Substance: PREDNISONE
     Indication: Plasma cell myeloma
     Dosage: PART OF VMP REGIMEN
     Route: 065

REACTIONS (5)
  - Thrombocytopenia [Unknown]
  - Paraesthesia [Unknown]
  - Diarrhoea [Unknown]
  - Hypophosphataemia [Unknown]
  - Toxicity to various agents [Unknown]
